FAERS Safety Report 7949740-8 (Version None)
Quarter: 2011Q4

REPORT INFORMATION
  Report Type: 
  Country: None (occurrence: None)
  Receive Date: 20111130
  Receipt Date: 20111122
  Transmission Date: 20120403
  Serious: Yes (Hospitalization, Other)
  Sender: FDA-Public Use
  Company Number: FR-PFIZER INC-2011101007

PATIENT
  Age: 65 Year
  Sex: Male

DRUGS (11)
  1. FUROSEMIDE [Suspect]
     Dosage: UNK
     Route: 048
     Dates: start: 20110211, end: 20110224
  2. KEPPRA [Suspect]
     Dosage: UNK
     Route: 048
     Dates: start: 20110228, end: 20110303
  3. POTASSIUM CHLORIDE [Concomitant]
  4. TEMODAL [Suspect]
     Dosage: UNK
     Route: 048
     Dates: start: 20110101, end: 20110223
  5. DOMPERIDONE [Suspect]
     Dosage: UNK
     Route: 065
     Dates: start: 20110201, end: 20110224
  6. ATENOLOL [Suspect]
     Dosage: UNK
     Route: 048
  7. NEXIUM [Suspect]
     Dosage: UNK
     Route: 048
     Dates: start: 20101001, end: 20110223
  8. KEPPRA [Suspect]
     Indication: CONVULSION
     Dosage: UNK
     Route: 048
     Dates: start: 20101001, end: 20110228
  9. ATACAND [Suspect]
     Route: 065
  10. IMOVANE [Suspect]
     Dosage: UNK
     Route: 065
     Dates: end: 20110223
  11. MEDROL [Suspect]
     Dosage: UNK
     Route: 048
     Dates: start: 20101001

REACTIONS (3)
  - JAUNDICE [None]
  - HEPATIC ENZYME INCREASED [None]
  - DECREASED APPETITE [None]
